FAERS Safety Report 9848627 (Version 1)
Quarter: 2014Q1

REPORT INFORMATION
  Report Type: Spontaneous
  Country: US (occurrence: None)
  Receive Date: 20140122
  Receipt Date: 20140122
  Transmission Date: 20141002
  Serious: Yes (Death)
  Sender: FDA-Public Use
  Company Number: UTC-043048

PATIENT
  Age: 62 Year
  Sex: Female
  Weight: 106.8 kg

DRUGS (2)
  1. TYVASO (6 MICROGRAM, AEROSOL FOR INHALATION) (TREPROSTINIL SODIUM) [Suspect]
     Indication: PULMONARY ARTERIAL HYPERTENSION
     Route: 055
     Dates: start: 20130313
  2. REVATIO (SILDENAFIL CITRATE)( UNKNOWN) [Concomitant]

REACTIONS (1)
  - Death [None]
